FAERS Safety Report 14793663 (Version 1)
Quarter: 2018Q2

REPORT INFORMATION
  Report Type: Spontaneous
  Country: US (occurrence: US)
  Receive Date: 20180423
  Receipt Date: 20180423
  Transmission Date: 20180711
  Serious: No
  Sender: FDA-Public Use
  Company Number: US-SHIRE-US201815198

PATIENT

DRUGS (1)
  1. XIIDRA [Suspect]
     Active Substance: LIFITEGRAST
     Indication: DRY EYE
     Dosage: ONCE IN THE MORNING AND AT NIGHT
     Route: 047

REACTIONS (3)
  - Dry eye [Unknown]
  - Instillation site reaction [Unknown]
  - Drug ineffective [Unknown]
